FAERS Safety Report 18089328 (Version 7)
Quarter: 2021Q4

REPORT INFORMATION
  Report Type: Report from Study
  Country: UA (occurrence: UA)
  Receive Date: 20200729
  Receipt Date: 20211021
  Transmission Date: 20220303
  Serious: Yes (Other)
  Sender: FDA-Public Use
  Company Number: UA-CELGENE-UKR-20200504435

PATIENT
  Age: 26 Year
  Sex: Female
  Weight: 60 kg

DRUGS (2)
  1. OZANIMOD [Suspect]
     Active Substance: OZANIMOD
     Indication: Relapsing multiple sclerosis
     Dosage: 1 MILLIGRAM
     Route: 048
     Dates: start: 20161124, end: 20200512
  2. Rigevidon [Concomitant]
     Indication: Contraception
     Route: 048
     Dates: start: 20150825

REACTIONS (3)
  - Foetal death [Recovered/Resolved]
  - Pregnancy [Recovered/Resolved]
  - Pregnancy on contraceptive [Unknown]

NARRATIVE: CASE EVENT DATE: 20200513
